FAERS Safety Report 23726531 (Version 1)
Quarter: 2024Q2

REPORT INFORMATION
  Report Type: Spontaneous
  Country: US (occurrence: None)
  Receive Date: 20240408
  Receipt Date: 20240408
  Transmission Date: 20240716
  Serious: Yes (Disabling, Other)
  Sender: FDA-Public Use
  Company Number: None

PATIENT
  Age: 35 Year
  Sex: Male
  Weight: 54 kg

DRUGS (8)
  1. ISOBUTYL NITRITE [Suspect]
     Active Substance: ISOBUTYL NITRITE
     Indication: Product used for unknown indication
     Dates: end: 20230802
  2. VALACYCLOVIR [Concomitant]
     Active Substance: VALACYCLOVIR HYDROCHLORIDE
  3. GABAPENTIN [Concomitant]
     Active Substance: GABAPENTIN
  4. Pantoprazole enteric coated [Concomitant]
  5. Fluoridex 1.1% dental paste [Concomitant]
  6. CICLOPIROX [Concomitant]
     Active Substance: CICLOPIROX\TOCOPHEROL
  7. FAMOTIDINE [Concomitant]
     Active Substance: FAMOTIDINE
  8. VITAFUSION VITAMIN D3 [Concomitant]

REACTIONS (5)
  - Ocular discomfort [None]
  - Tinnitus [None]
  - Vitreous floaters [None]
  - Headache [None]
  - Visual snow syndrome [None]

NARRATIVE: CASE EVENT DATE: 20230805
